FAERS Safety Report 8974141 (Version 1)
Quarter: 2012Q4

REPORT INFORMATION
  Report Type: Spontaneous
  Country: US (occurrence: None)
  Receive Date: 20121213
  Receipt Date: 20121213
  Transmission Date: 20130627
  Serious: Yes (Hospitalization)
  Sender: FDA-Public Use
  Company Number: None

PATIENT
  Age: 54 Year
  Sex: Male

DRUGS (1)
  1. RITUXAN [Suspect]
     Dosage: Q14D
     Route: 042
     Dates: start: 20120828, end: 20120925

REACTIONS (4)
  - Infusion related reaction [None]
  - Chills [None]
  - Hypotension [None]
  - Bradycardia [None]
